FAERS Safety Report 14829011 (Version 3)
Quarter: 2018Q2

REPORT INFORMATION
  Report Type: Spontaneous
  Country: CA (occurrence: CA)
  Receive Date: 20180430
  Receipt Date: 20180601
  Transmission Date: 20180711
  Serious: Yes (Other)
  Sender: FDA-Public Use
  Company Number: CA-PFIZER INC-2018170507

PATIENT
  Age: 15 Year
  Sex: Female

DRUGS (1)
  1. MEDROXYPROGESTERONE ACETATE. [Suspect]
     Active Substance: MEDROXYPROGESTERONE ACETATE
     Indication: MENSTRUAL CYCLE MANAGEMENT
     Dosage: 150 MG, CYCLIC (EVERY 12 WEEKS)
     Route: 030

REACTIONS (2)
  - Uterine haemorrhage [Not Recovered/Not Resolved]
  - Product use in unapproved indication [Unknown]
